FAERS Safety Report 7132248-X (Version None)
Quarter: 2010Q4

REPORT INFORMATION
  Report Type: 
  Country: None (occurrence: None)
  Receive Date: 20101202
  Receipt Date: 20101118
  Transmission Date: 20110411
  Serious: Yes (Death, Hospitalization)
  Sender: FDA-Public Use
  Company Number: PHHO2009NL06882

PATIENT
  Sex: Male
  Weight: 61 kg

DRUGS (5)
  1. EXELON EXELON+SOL [Suspect]
     Indication: DELIRIUM
     Dosage: 1.5 MG
     Route: 048
     Dates: start: 20090529
  2. EXELON EXELON+SOL [Suspect]
     Dosage: 1.5 MG, BID
     Route: 048
     Dates: start: 20090530
  3. EXELON EXELON+SOL [Suspect]
     Dosage: 1.5 MG, BID
     Route: 048
     Dates: start: 20090531
  4. EXELON EXELON+SOL [Suspect]
     Dosage: 4.5 MG
     Route: 048
     Dates: start: 20090601
  5. EXELON EXELON+SOL [Suspect]
     Dosage: 3 MG
     Route: 048
     Dates: start: 20090602

REACTIONS (9)
  - ABDOMINAL OPERATION [None]
  - ADHESIOLYSIS [None]
  - DISEASE PROGRESSION [None]
  - ENTEROSTOMY [None]
  - ILEUS [None]
  - INTESTINAL PERFORATION [None]
  - MALIGNANT ASCITES [None]
  - POST PROCEDURAL COMPLICATION [None]
  - SEPTIC SHOCK [None]
